FAERS Safety Report 7686009-3 (Version None)
Quarter: 2011Q3

REPORT INFORMATION
  Report Type: 
  Country: None (occurrence: None)
  Receive Date: 20110816
  Receipt Date: 20110728
  Transmission Date: 20111222
  Serious: No
  Sender: FDA-Public Use
  Company Number: US-PFIZER INC-2011173130

PATIENT
  Age: 71 Year
  Sex: Female

DRUGS (3)
  1. BENZONATATE [Suspect]
     Dosage: UNK
     Dates: start: 20110712
  2. ALLEGRA [Suspect]
     Indication: HYPERSENSITIVITY
     Dosage: 180 MG, 1X/DAY
     Route: 048
     Dates: start: 20110701, end: 20110701
  3. ALLEGRA [Suspect]
     Indication: THROAT IRRITATION
     Dosage: 180 MG, 1X/DAY
     Route: 048
     Dates: start: 20110701

REACTIONS (2)
  - DRY MOUTH [None]
  - DRY THROAT [None]
